FAERS Safety Report 8223806-X (Version None)
Quarter: 2012Q1

REPORT INFORMATION
  Report Type: 
  Country: None (occurrence: None)
  Receive Date: 20120321
  Receipt Date: 20120321
  Transmission Date: 20120608
  Serious: Yes (Other)
  Sender: FDA-Public Use
  Company Number: None

PATIENT
  Age: 23 Year
  Sex: Female
  Weight: 94.3 kg

DRUGS (13)
  1. FENTANYL-100 [Concomitant]
  2. TOLTERADINE [Concomitant]
  3. VENLAFAXINE [Concomitant]
  4. PANTOPRAZOLE [Concomitant]
  5. POTASSIUM CHLORIDE [Concomitant]
  6. DIPHENHYDRAMINE HCL [Concomitant]
  7. HYDROMORPHONE HCL [Concomitant]
  8. DILTIAZEM HCL [Concomitant]
  9. PAROXETINE HCL [Concomitant]
  10. CARVEDILOL [Concomitant]
  11. FOSFOMYCIN [Concomitant]
  12. ONDANSETRON [Concomitant]
  13. CHLORAPREP [Suspect]

REACTIONS (3)
  - APPLICATION SITE RASH [None]
  - APPLICATION SITE ERYTHEMA [None]
  - PRURITUS [None]
